FAERS Safety Report 6685451-7 (Version None)
Quarter: 2010Q2

REPORT INFORMATION
  Report Type: 
  Country: None (occurrence: None)
  Receive Date: 20100419
  Receipt Date: 20100409
  Transmission Date: 20101027
  Serious: Yes (Other)
  Sender: FDA-Public Use
  Company Number: US-BIOGENIDEC-2010BI008415

PATIENT
  Age: 50 Year
  Sex: Female

DRUGS (2)
  1. TYSABRI [Suspect]
     Indication: MULTIPLE SCLEROSIS
     Route: 042
     Dates: start: 20080818
  2. TYSABRI [Suspect]
     Route: 042
     Dates: start: 20080818

REACTIONS (5)
  - BREAST CANCER [None]
  - CATARACT [None]
  - IMPAIRED HEALING [None]
  - OSTEITIS DEFORMANS [None]
  - POST PROCEDURAL INFECTION [None]
